FAERS Safety Report 25244240 (Version 1)
Quarter: 2025Q2

REPORT INFORMATION
  Report Type: Spontaneous
  Country: KR (occurrence: KR)
  Receive Date: 20250428
  Receipt Date: 20250428
  Transmission Date: 20250716
  Serious: Yes (Hospitalization)
  Sender: ROCHE
  Company Number: KR-CKD-20250416001

PATIENT
  Age: 52 Year
  Sex: Female

DRUGS (13)
  1. VALGANCICLOVIR [Suspect]
     Active Substance: VALGANCICLOVIR
     Indication: Cytomegalovirus infection
     Route: 048
  2. VALGANCICLOVIR [Suspect]
     Active Substance: VALGANCICLOVIR
     Indication: Cytomegalovirus chorioretinitis
  3. GANCICLOVIR [Suspect]
     Active Substance: GANCICLOVIR
     Indication: Cytomegalovirus infection
     Route: 065
     Dates: start: 20231221
  4. GANCICLOVIR [Suspect]
     Active Substance: GANCICLOVIR
     Indication: Cytomegalovirus chorioretinitis
     Route: 042
     Dates: start: 20231221
  5. CYCLOSPORINE [Concomitant]
     Active Substance: CYCLOSPORINE
     Indication: Graft versus host disease
     Route: 042
  6. CYCLOSPORINE [Concomitant]
     Active Substance: CYCLOSPORINE
     Route: 042
  7. CYCLOSPORINE [Concomitant]
     Active Substance: CYCLOSPORINE
     Dosage: CYCLOSPORINE WAS SWITCHED TO ORAL CYCLOSPORINE 125 MG IN THE MORNING AND 150 MG AT NIGHT
     Route: 042
  8. CYCLOSPORINE [Concomitant]
     Active Substance: CYCLOSPORINE
     Dosage: CYCLOSPORINE WAS SWITCHED TO ORAL CYCLOSPORINE 125 MG IN THE MORNING AND 150 MG AT NIGHT
     Route: 042
  9. CYCLOSPORINE [Concomitant]
     Active Substance: CYCLOSPORINE
     Route: 048
     Dates: start: 20231221
  10. CYCLOSPORINE [Concomitant]
     Active Substance: CYCLOSPORINE
     Route: 048
  11. CYCLOSPORINE [Concomitant]
     Active Substance: CYCLOSPORINE
     Route: 048
  12. MARIBAVIR [Concomitant]
     Active Substance: MARIBAVIR
     Route: 048
     Dates: start: 20240116
  13. FOSCARNET [Concomitant]
     Active Substance: FOSCARNET
     Route: 042

REACTIONS (3)
  - Drug resistance [Unknown]
  - Off label use [Unknown]
  - Off label use [Unknown]
